FAERS Safety Report 9880711 (Version 1)
Quarter: 2014Q1

REPORT INFORMATION
  Report Type: Spontaneous
  Country: US (occurrence: US)
  Receive Date: 20140207
  Receipt Date: 20140207
  Transmission Date: 20141002
  Serious: Yes (Death, Life-Threatening, Other)
  Sender: FDA-Public Use
  Company Number: US-ELI_LILLY_AND_COMPANY-US201402000792

PATIENT
  Sex: Male

DRUGS (2)
  1. HUMALOG LISPRO [Suspect]
     Indication: DIABETES MELLITUS
     Route: 065
  2. LANTUS [Concomitant]
     Indication: DIABETES MELLITUS

REACTIONS (3)
  - Cardiac arrest [Fatal]
  - Cardiac disorder [Unknown]
  - Blood glucose increased [Not Recovered/Not Resolved]
